FAERS Safety Report 4445273-4 (Version None)
Quarter: 2004Q3

REPORT INFORMATION
  Report Type: 
  Country: None (occurrence: None)
  Receive Date: 20040907
  Receipt Date: 20040826
  Transmission Date: 20050211
  Serious: No
  Sender: FDA-Public Use
  Company Number: 04P-078-0268969-00

PATIENT

DRUGS (1)
  1. BIAXIN [Suspect]

REACTIONS (3)
  - INJECTION SITE PAIN [None]
  - PHARMACEUTICAL PRODUCT COMPLAINT [None]
  - THROMBOPHLEBITIS [None]
